FAERS Safety Report 4898026-7 (Version None)
Quarter: 2006Q1

REPORT INFORMATION
  Report Type: 
  Country: None (occurrence: None)
  Receive Date: 20060201
  Receipt Date: 20050727
  Transmission Date: 20060701
  Serious: Yes (Life-Threatening)
  Sender: FDA-Public Use
  Company Number: JP-ROCHE-412099

PATIENT
  Age: 87 Year
  Sex: Male

DRUGS (12)
  1. ROCEPHIN [Suspect]
     Indication: PNEUMONIA
     Route: 041
     Dates: start: 20050721, end: 20050721
  2. FUROSEMIDE [Concomitant]
     Route: 048
     Dates: start: 20020906
  3. WARFARIN [Concomitant]
     Route: 048
     Dates: start: 20020906
  4. ALLOZYM [Concomitant]
     Route: 048
     Dates: start: 20020906
  5. DIGOSIN [Concomitant]
     Route: 048
     Dates: start: 20020906
  6. PROMAC [Concomitant]
     Route: 048
     Dates: start: 20020906
  7. ARTIST [Concomitant]
     Route: 048
     Dates: start: 20020906
  8. VERAPAMIL [Concomitant]
     Route: 048
     Dates: start: 20020906
  9. MAGNESIUM OXIDE [Concomitant]
     Dosage: ORAL FORMULATION.
     Route: 048
     Dates: start: 20020906
  10. FLUITRAN [Concomitant]
     Route: 048
     Dates: start: 20050720, end: 20050721
  11. SUNRIS [Concomitant]
     Route: 048
     Dates: start: 20050720, end: 20050721
  12. LASIX [Concomitant]
     Route: 041
     Dates: start: 20050721, end: 20050721

REACTIONS (2)
  - ANAPHYLACTIC SHOCK [None]
  - BRONCHOSTENOSIS [None]
